FAERS Safety Report 15409140 (Version 1)
Quarter: 2018Q3

REPORT INFORMATION
  Report Type: Spontaneous
  Country: US (occurrence: US)
  Receive Date: 20180920
  Receipt Date: 20180920
  Transmission Date: 20181010
  Serious: Yes (Hospitalization, Other)
  Sender: FDA-Public Use
  Company Number: US-SA-2018SA259538

PATIENT
  Age: 31 Year
  Sex: Female

DRUGS (2)
  1. LIDOCAINE. [Suspect]
     Active Substance: LIDOCAINE
     Indication: ANAESTHESIA
     Dosage: 4 %
     Route: 061
  2. BENZOCAINE. [Suspect]
     Active Substance: BENZOCAINE
     Indication: ANAESTHESIA
     Dosage: TWO BRIEFSPRAYS
     Route: 061

REACTIONS (3)
  - Blood lactic acid increased [Recovering/Resolving]
  - Dyspnoea [Recovering/Resolving]
  - Methaemoglobinaemia [Recovering/Resolving]
